FAERS Safety Report 22156456 (Version 1)
Quarter: 2023Q1

REPORT INFORMATION
  Report Type: Spontaneous
  Country: IR (occurrence: IR)
  Receive Date: 20230330
  Receipt Date: 20230330
  Transmission Date: 20230418
  Serious: Yes (Death)
  Sender: FDA-Public Use
  Company Number: IR-SA-2018SA236101

PATIENT
  Age: 5 Month
  Sex: Male

DRUGS (1)
  1. MYOZYME [Suspect]
     Active Substance: ALGLUCOSIDASE ALFA
     Indication: Glycogen storage disease type II
     Dosage: 20 IU/KG, UNK
     Route: 041
     Dates: start: 201802

REACTIONS (2)
  - Rash [Fatal]
  - Pyrexia [Fatal]
